FAERS Safety Report 15535582 (Version 2)
Quarter: 2018Q4

REPORT INFORMATION
  Report Type: Spontaneous
  Country: US (occurrence: US)
  Receive Date: 20181022
  Receipt Date: 20181108
  Transmission Date: 20190205
  Serious: No
  Sender: FDA-Public Use
  Company Number: US-PFIZER INC-2016131345

PATIENT
  Age: 68 Year
  Sex: Female
  Weight: 88 kg

DRUGS (7)
  1. LYRICA [Suspect]
     Active Substance: PREGABALIN
     Indication: DIABETIC NEUROPATHY
  2. LYRICA [Suspect]
     Active Substance: PREGABALIN
     Indication: FIBROMYALGIA
  3. LYRICA [Suspect]
     Active Substance: PREGABALIN
     Indication: BACK PAIN
     Dosage: 75 MG, 4X/DAY
     Route: 048
  4. LYRICA [Suspect]
     Active Substance: PREGABALIN
     Indication: OSTEOARTHRITIS
     Dosage: UNK, DAILY
  5. LYRICA [Suspect]
     Active Substance: PREGABALIN
     Indication: ARTHRALGIA
  6. LYRICA [Suspect]
     Active Substance: PREGABALIN
     Indication: ESSENTIAL TREMOR
  7. LYRICA [Suspect]
     Active Substance: PREGABALIN
     Indication: PAIN
     Dosage: 75 MG, 3X/DAY
     Route: 048

REACTIONS (1)
  - Product use issue [Unknown]
